FAERS Safety Report 6403537-9 (Version None)
Quarter: 2009Q4

REPORT INFORMATION
  Report Type: 
  Country: None (occurrence: None)
  Receive Date: 20091016
  Receipt Date: 20091008
  Transmission Date: 20100525
  Serious: Yes (Death, Other)
  Sender: FDA-Public Use
  Company Number: US-TYCO HEALTHCARE/MALLINCKRODT-T200901872

PATIENT
  Sex: Female

DRUGS (1)
  1. OPTIMARK [Suspect]
     Indication: IMAGING PROCEDURE
     Dosage: UNK
     Route: 042

REACTIONS (1)
  - NEPHROGENIC SYSTEMIC FIBROSIS [None]
